FAERS Safety Report 10227561 (Version 1)
Quarter: 2014Q2

REPORT INFORMATION
  Report Type: Spontaneous
  Country: US (occurrence: None)
  Receive Date: 20140609
  Receipt Date: 20140609
  Transmission Date: 20141212
  Serious: Yes (Other)
  Sender: FDA-Public Use
  Company Number: None

PATIENT
  Age: 31 Year
  Sex: Male
  Weight: 104.33 kg

DRUGS (1)
  1. CREST PRO HEALTH CLINICAL MOUTHWASH [Suspect]
     Indication: GINGIVITIS
     Dosage: 10ML, TWICE DAILY, ORAL RINSE
     Route: 048
     Dates: start: 20140602, end: 20140605

REACTIONS (2)
  - Muscle spasms [None]
  - Skin necrosis [None]
